FAERS Safety Report 9848862 (Version 1)
Quarter: 2014Q1

REPORT INFORMATION
  Report Type: Report from Study
  Country: CA (occurrence: CA)
  Receive Date: 20140128
  Receipt Date: 20140128
  Transmission Date: 20141002
  Serious: Yes (Hospitalization)
  Sender: FDA-Public Use
  Company Number: CA-JNJFOC-20140112426

PATIENT
  Age: 31 Year
  Sex: Female
  Weight: 63.5 kg

DRUGS (2)
  1. REMICADE [Suspect]
     Indication: PRODUCT USED FOR UNKNOWN INDICATION
     Route: 042
     Dates: start: 20121123, end: 201309
  2. BENADRYL [Concomitant]
     Indication: PREMEDICATION
     Route: 065

REACTIONS (6)
  - Alopecia [Unknown]
  - Rash [Unknown]
  - Arthralgia [Unknown]
  - Joint stiffness [Unknown]
  - Urticaria [Unknown]
  - Infusion related reaction [Unknown]
